FAERS Safety Report 23232735 (Version 1)
Quarter: 2023Q4

REPORT INFORMATION
  Report Type: Spontaneous
  Country: FR (occurrence: FR)
  Receive Date: 20231128
  Receipt Date: 20231128
  Transmission Date: 20240109
  Serious: Yes (Other)
  Sender: FDA-Public Use
  Company Number: FR-AMGEN-FRASP2023209405

PATIENT
  Age: 74 Year
  Sex: Male

DRUGS (3)
  1. REPATHA [Suspect]
     Active Substance: EVOLOCUMAB
     Indication: Hypercholesterolaemia
     Dosage: 1 INJECTION ON 04/11/2023 AND 1 INJECTION ON 18/11/2023.
     Route: 058
     Dates: start: 20231004, end: 20231018
  2. INFLUENZA VIRUS VACCINE QUADRIVALENT TYPE A+B [Suspect]
     Active Substance: INFLUENZA VIRUS VACCINE QUADRIVALENT TYPE A+B
     Indication: Influenza immunisation
     Dosage: 1 DOSAGE FORM
     Route: 030
     Dates: start: 20231024, end: 20231024
  3. COMIRNATY (TOZINAMERAN) [Suspect]
     Active Substance: TOZINAMERAN
     Indication: COVID-19 immunisation
     Dosage: RUNK
     Route: 030
     Dates: start: 20230921, end: 20230921

REACTIONS (2)
  - Liver injury [Recovering/Resolving]
  - Rash [Recovering/Resolving]

NARRATIVE: CASE EVENT DATE: 20231027
